FAERS Safety Report 10214980 (Version 1)
Quarter: 2014Q2

REPORT INFORMATION
  Report Type: Report from Study
  Country: DK (occurrence: DE)
  Receive Date: 20140603
  Receipt Date: 20140603
  Transmission Date: 20141212
  Serious: Yes (Hospitalization)
  Sender: FDA-Public Use
  Company Number: DE-FRI-1000067686

PATIENT
  Sex: Female

DRUGS (4)
  1. CITALOPRAM [Suspect]
     Dosage: 10 MG
     Route: 048
     Dates: start: 20130113, end: 20130215
  2. CITALOPRAM [Suspect]
     Dosage: 20 MG
     Route: 048
     Dates: start: 20130216, end: 20131017
  3. VENLAFAXIN [Suspect]
     Dosage: 75 MG
     Route: 048
     Dates: start: 20130320, end: 20130415
  4. VENLAFAXIN [Suspect]
     Dosage: 150 MG
     Route: 048
     Dates: start: 20130416, end: 20131114

REACTIONS (1)
  - Nightmare [Recovered/Resolved]
